FAERS Safety Report 23776414 (Version 1)
Quarter: 2024Q2

REPORT INFORMATION
  Report Type: Report from Study
  Country: US (occurrence: US)
  Receive Date: 20240424
  Receipt Date: 20240424
  Transmission Date: 20240716
  Serious: Yes (Other)
  Sender: FDA-Public Use
  Company Number: US-NOVITIUMPHARMA-2024USNVP00616

PATIENT
  Sex: Male
  Weight: 9 kg

DRUGS (4)
  1. CARGLUMIC ACID [Suspect]
     Active Substance: CARGLUMIC ACID
     Indication: Propionic acidaemia
     Route: 045
     Dates: start: 20240409
  2. ENOXAPARIN [Concomitant]
     Active Substance: ENOXAPARIN
     Indication: Product used for unknown indication
     Dosage: 40 MG/0.5 ML
  3. KEPPRA [Concomitant]
     Active Substance: LEVETIRACETAM
     Indication: Product used for unknown indication
  4. VITAMINS [Concomitant]
     Active Substance: VITAMINS
     Indication: Product used for unknown indication

REACTIONS (1)
  - Haematochezia [Unknown]
